FAERS Safety Report 5589186-3 (Version None)
Quarter: 2008Q1

REPORT INFORMATION
  Report Type: 
  Country: None (occurrence: None)
  Receive Date: 20080110
  Receipt Date: 20080110
  Transmission Date: 20080703
  Serious: Yes (Hospitalization)
  Sender: FDA-Public Use
  Company Number: None

PATIENT
  Age: 62 Year
  Sex: Female
  Weight: 56.246 kg

DRUGS (1)
  1. CEFTRIAXONE [Suspect]
     Dosage: (ONE DOSE)
     Dates: start: 20071217, end: 20071217

REACTIONS (3)
  - CHEST PAIN [None]
  - HYPOTENSION [None]
  - RASH [None]
